FAERS Safety Report 23981105 (Version 2)
Quarter: 2024Q3

REPORT INFORMATION
  Report Type: Spontaneous
  Country: CN (occurrence: CN)
  Receive Date: 20240617
  Receipt Date: 20240701
  Transmission Date: 20241016
  Serious: Yes (Other)
  Sender: MACLEODS
  Company Number: CN-MACLEODS PHARMA-MAC2024047661

PATIENT

DRUGS (10)
  1. TRIAMCINOLONE [Suspect]
     Active Substance: TRIAMCINOLONE
     Indication: Endocrine ophthalmopathy
     Dosage: 1 ML SYRINGE WAS USED TO EXTRACT 40 MG/ML TA,  PERIBULBAR ROUTE
     Route: 065
     Dates: start: 20230103, end: 20230103
  2. TRIAMCINOLONE [Suspect]
     Active Substance: TRIAMCINOLONE
     Dosage: 1 ML SYRINGE WAS USED TO EXTRACT 40 MG/ML TA, PERIBULBAR ROUTE
     Route: 065
     Dates: start: 20230208, end: 20230208
  3. TRIAMCINOLONE [Suspect]
     Active Substance: TRIAMCINOLONE
     Dosage: 1 ML SYRINGE WAS USED TO EXTRACT 40 MG/ML TA, PERIBULBAR ROUTE
     Route: 065
     Dates: start: 20230404, end: 20230404
  4. PROPYLTHIOURACIL [Concomitant]
     Active Substance: PROPYLTHIOURACIL
     Indication: Primary hyperthyroidism
     Dosage: 50 MG TID
     Route: 065
  5. PROPARACAINE HYDROCHLORIDE [Concomitant]
     Active Substance: PROPARACAINE HYDROCHLORIDE
     Route: 065
     Dates: start: 20230404, end: 20230404
  6. PROPARACAINE HYDROCHLORIDE [Concomitant]
     Active Substance: PROPARACAINE HYDROCHLORIDE
     Route: 065
     Dates: start: 20230103, end: 20230103
  7. PROPARACAINE HYDROCHLORIDE [Concomitant]
     Active Substance: PROPARACAINE HYDROCHLORIDE
     Route: 065
     Dates: start: 20230208, end: 20230208
  8. POVIDONE-IODINE [Concomitant]
     Active Substance: POVIDONE-IODINE
     Indication: Infection prophylaxis
     Route: 065
     Dates: start: 20230404, end: 20230404
  9. POVIDONE-IODINE [Concomitant]
     Active Substance: POVIDONE-IODINE
     Route: 065
     Dates: start: 20230208, end: 20230208
  10. POVIDONE-IODINE [Concomitant]
     Active Substance: POVIDONE-IODINE
     Route: 065
     Dates: start: 20230103, end: 20230103

REACTIONS (3)
  - Retinal artery occlusion [Unknown]
  - Retching [Unknown]
  - Nausea [Unknown]

NARRATIVE: CASE EVENT DATE: 20230101
